FAERS Safety Report 21503733 (Version 1)
Quarter: 2022Q4

REPORT INFORMATION
  Report Type: Spontaneous
  Country: US (occurrence: None)
  Receive Date: 20221025
  Receipt Date: 20221025
  Transmission Date: 20230112
  Serious: Yes (Other)
  Sender: FDA-Public Use
  Company Number: None

PATIENT
  Age: 55 Year
  Sex: Female
  Weight: 90 kg

DRUGS (2)
  1. GAMUNEX-C [Suspect]
     Active Substance: HUMAN IMMUNOGLOBULIN G
     Indication: Chronic inflammatory demyelinating polyradiculoneuropathy
     Dosage: OTHER FREQUENCY : QD X 2 DAYS Q4WEEK;?
     Route: 042
     Dates: start: 20220818
  2. GAMUNEX [Suspect]
     Active Substance: HUMAN IMMUNOGLOBULIN G
     Indication: Chronic inflammatory demyelinating polyradiculoneuropathy
     Dosage: OTHER FREQUENCY : QD X 2 DAYS Q4WEEK;?
     Route: 042
     Dates: start: 20220818

REACTIONS (4)
  - Dizziness [None]
  - Vertigo [None]
  - Palpitations [None]
  - Product substitution issue [None]

NARRATIVE: CASE EVENT DATE: 20221024
